FAERS Safety Report 19682141 (Version 1)
Quarter: 2021Q3

REPORT INFORMATION
  Report Type: Spontaneous
  Country: FR (occurrence: FR)
  Receive Date: 20210810
  Receipt Date: 20210810
  Transmission Date: 20211014
  Serious: Yes (Other)
  Sender: FDA-Public Use
  Company Number: FR-MYLANLABS-2021M1048991

PATIENT
  Age: 90 Year

DRUGS (1)
  1. TEMOZOLOMIDE. [Suspect]
     Active Substance: TEMOZOLOMIDE
     Indication: NON-HODGKIN^S LYMPHOMA
     Dosage: AT A DOSE OF 150 MG OR 200 MG/M2 5 DAYS A MONTH, EVERY MONTH
     Route: 048

REACTIONS (1)
  - Disease recurrence [Unknown]
